FAERS Safety Report 12913824 (Version 1)
Quarter: 2016Q4

REPORT INFORMATION
  Report Type: Spontaneous
  Country: GB (occurrence: GB)
  Receive Date: 20161105
  Receipt Date: 20161105
  Transmission Date: 20170207
  Serious: Yes (Other)
  Sender: FDA-Public Use
  Company Number: GB-ACCORD-045263

PATIENT
  Age: 69 Year
  Sex: Female
  Weight: 101 kg

DRUGS (13)
  1. ALENDRONATE SODIUM/ALENDRONIC ACID [Concomitant]
     Dosage: (MONDAY MORNING, WITH FULL GL...)
     Dates: start: 20160225
  2. ACETYLSALICYLIC ACID [Concomitant]
     Active Substance: ASPIRIN
     Dates: start: 20160225
  3. HYDROXYCHLOROQUINE [Concomitant]
     Active Substance: HYDROXYCHLOROQUINE
     Dates: start: 20160225
  4. LISINOPRIL. [Concomitant]
     Active Substance: LISINOPRIL
     Dates: start: 20160225
  5. CLOBETASOL [Concomitant]
     Active Substance: CLOBETASOL
     Dosage: APPLY 1-2 TIMES/DAY
     Dates: start: 20160225
  6. MACROGOL/MACROGOL STEARATE [Concomitant]
     Dates: start: 20160225
  7. RIVAROXABAN [Concomitant]
     Active Substance: RIVAROXABAN
     Dates: start: 20160321
  8. NYSTATIN/NYSTATIN/LIPOSOME [Concomitant]
     Dates: start: 20160906, end: 20160913
  9. CETRABEN [Concomitant]
     Active Substance: PARAFFIN
     Dosage: USE AS DIRECTED.
     Dates: start: 20160225
  10. MOMETASONE [Concomitant]
     Active Substance: MOMETASONE
     Dates: start: 20160225
  11. SIMVASTATIN. [Concomitant]
     Active Substance: SIMVASTATIN
     Dosage: 1 TO BE TAKEN EACH NIGHT
     Dates: start: 20160225
  12. SPIRONOLACTONE. [Suspect]
     Active Substance: SPIRONOLACTONE
     Indication: PRODUCT USED FOR UNKNOWN INDICATION
     Dates: start: 20160712
  13. PANTOPRAZOLE [Concomitant]
     Active Substance: PANTOPRAZOLE SODIUM
     Dates: start: 20160225

REACTIONS (2)
  - Confusional state [Recovered/Resolved]
  - Memory impairment [Recovered/Resolved]

NARRATIVE: CASE EVENT DATE: 20161014
